FAERS Safety Report 9018713 (Version 2)
Quarter: 2013Q1

REPORT INFORMATION
  Report Type: Spontaneous
  Country: BR (occurrence: BR)
  Receive Date: 20130118
  Receipt Date: 20130329
  Transmission Date: 20140127
  Serious: Yes (Death, Other)
  Sender: FDA-Public Use
  Company Number: PHHY2013BR004499

PATIENT
  Sex: Female
  Weight: 60 kg

DRUGS (1)
  1. EXELON PATCH [Suspect]
     Indication: DEMENTIA ALZHEIMER^S TYPE
     Dosage: 9 MG/5CM2 1 PATCH DAILY
     Route: 062

REACTIONS (2)
  - Hepatic neoplasm [Fatal]
  - Pancreatic carcinoma [Unknown]
